FAERS Safety Report 25874193 (Version 1)
Quarter: 2025Q4

REPORT INFORMATION
  Report Type: Spontaneous
  Country: CN (occurrence: CN)
  Receive Date: 20251002
  Receipt Date: 20251002
  Transmission Date: 20260118
  Serious: Yes (Hospitalization, Other)
  Sender: PFIZER
  Company Number: CN-PFIZER INC-PV202500117304

PATIENT
  Age: 5 Day
  Sex: Male
  Weight: 1.56 kg

DRUGS (2)
  1. MEROPENEM [Suspect]
     Active Substance: MEROPENEM
     Indication: Neonatal pneumonia
     Dosage: 0.03 G, 2X/DAY (BID)
     Route: 041
     Dates: start: 20250912, end: 20250925
  2. CEFOPERAZONE SODIUM\SULBACTAM SODIUM [Suspect]
     Active Substance: CEFOPERAZONE SODIUM\SULBACTAM SODIUM
     Indication: Infection
     Dosage: 0.075 G, 2X/DAY
     Route: 041
     Dates: start: 20250911, end: 20250915

REACTIONS (3)
  - Necrotising enterocolitis neonatal [Unknown]
  - Fungal infection [Recovering/Resolving]
  - Product administered to patient of inappropriate age [Unknown]

NARRATIVE: CASE EVENT DATE: 20250912
